FAERS Safety Report 12232199 (Version 2)
Quarter: 2016Q2

REPORT INFORMATION
  Report Type: Spontaneous
  Country: US (occurrence: US)
  Receive Date: 20160401
  Receipt Date: 20160503
  Transmission Date: 20160815
  Serious: No
  Sender: FDA-Public Use
  Company Number: US-PFIZER INC-2016149955

PATIENT
  Age: 79 Year
  Sex: Male
  Weight: 87 kg

DRUGS (16)
  1. VIAGRA [Suspect]
     Active Substance: SILDENAFIL CITRATE
     Dosage: 100 MG, AS NEEDED (ON WEEKEND) (ONE-HALF TO ONE TABLET ONCE DAILY)
     Route: 048
  2. TRIBULUS [Concomitant]
     Dosage: 1000 MG, UNK
  3. VIAGRA [Suspect]
     Active Substance: SILDENAFIL CITRATE
     Indication: ERECTILE DYSFUNCTION
     Dosage: 50 MG, 1/2 TABLET
     Route: 048
  4. CITRULLINE [Concomitant]
     Active Substance: CITRULLINE
     Dosage: 750 MG, UNK
  5. BIOTIN [Concomitant]
     Active Substance: BIOTIN
     Dosage: 5000 UG, UNK
  6. FLAXSEED [Concomitant]
     Active Substance: FLAX SEED
     Dosage: 1200 MG, UNK
  7. GLUTAMINE [Concomitant]
     Active Substance: GLUTAMINE
     Dosage: 1000 MG, UNK
  8. RED YEAST RICE [Concomitant]
     Active Substance: DIETARY SUPPLEMENT
     Dosage: 1200 MG, UNK
  9. L-CARNITINE [Concomitant]
     Active Substance: LEVOCARNITINE
     Dosage: 500 MG, UNK
  10. VITAMIN C [Concomitant]
     Active Substance: ASCORBIC ACID
     Dosage: 1000 MG, UNK
  11. CLA [Concomitant]
     Dosage: UNK
  12. VIAGRA [Suspect]
     Active Substance: SILDENAFIL CITRATE
     Dosage: TWO 100 MG TABLETS
     Route: 048
  13. COQ 12 [Concomitant]
     Dosage: 100 MG, UNK
  14. FISH OIL [Concomitant]
     Active Substance: FISH OIL
     Dosage: 1200 MG, UNK
  15. GREEN TEA EXTRACT [Concomitant]
     Dosage: 750 MG, UNK
  16. CALCIUM [Concomitant]
     Active Substance: CALCIUM
     Dosage: 1200 MG, UNK

REACTIONS (2)
  - Intentional product use issue [Recovered/Resolved]
  - Drug ineffective [Not Recovered/Not Resolved]

NARRATIVE: CASE EVENT DATE: 2015
